FAERS Safety Report 10019675 (Version 4)
Quarter: 2014Q2

REPORT INFORMATION
  Report Type: Report from Study
  Country: PR (occurrence: PR)
  Receive Date: 20140318
  Receipt Date: 20140411
  Transmission Date: 20141212
  Serious: Yes (Hospitalization)
  Sender: FDA-Public Use
  Company Number: PR-ABBVIE-14K-131-1209883-00

PATIENT
  Age: 39 Year
  Sex: Male
  Weight: 63.56 kg

DRUGS (3)
  1. HUMIRA [Suspect]
     Indication: CROHN^S DISEASE
     Route: 058
     Dates: start: 201308, end: 201403
  2. PREDNISONE [Concomitant]
     Indication: CROHN^S DISEASE
     Route: 048
     Dates: start: 2013
  3. FOLIC ACID [Concomitant]
     Indication: HAEMOGLOBIN DECREASED
     Route: 048
     Dates: start: 2013

REACTIONS (5)
  - Haemoglobin decreased [Not Recovered/Not Resolved]
  - Enteritis [Recovering/Resolving]
  - Abdominal pain [Recovering/Resolving]
  - Pallor [Unknown]
  - Diarrhoea [Unknown]
